FAERS Safety Report 21167674 (Version 9)
Quarter: 2023Q1

REPORT INFORMATION
  Report Type: Spontaneous
  Country: US (occurrence: US)
  Receive Date: 20220803
  Receipt Date: 20230105
  Transmission Date: 20230418
  Serious: No
  Sender: FDA-Public Use
  Company Number: US-PFIZER INC-PV202200035766

PATIENT
  Age: 40 Year
  Sex: Female

DRUGS (1)
  1. IBRANCE [Suspect]
     Active Substance: PALBOCICLIB
     Dosage: 125 MG, CYCLIC (TAKING IBRANCE IN THE MORNING)
     Dates: start: 20220816, end: 2022

REACTIONS (12)
  - Fatigue [Recovered/Resolved]
  - Insomnia [Recovered/Resolved]
  - Nausea [Recovered/Resolved]
  - Rash pruritic [Recovered/Resolved]
  - White blood cell count decreased [Unknown]
  - Stomatitis [Recovered/Resolved]
  - Rash [Recovered/Resolved]
  - Noninfective gingivitis [Recovered/Resolved]
  - Product dose omission issue [Unknown]
  - Bone pain [Unknown]
  - Arthralgia [Unknown]
  - Feeling abnormal [Unknown]

NARRATIVE: CASE EVENT DATE: 20220101
